FAERS Safety Report 24211020 (Version 1)
Quarter: 2024Q3

REPORT INFORMATION
  Report Type: Spontaneous
  Country: US (occurrence: None)
  Receive Date: 20240814
  Receipt Date: 20240814
  Transmission Date: 20241016
  Serious: Yes (Hospitalization)
  Sender: Public
  Company Number: None

PATIENT
  Age: 33 Year
  Sex: Male
  Weight: 69.1 kg

DRUGS (3)
  1. CYTARABINE [Suspect]
     Active Substance: CYTARABINE
  2. METHOTREXATE [Concomitant]
  3. PREDNISONE [Concomitant]

REACTIONS (12)
  - Bacteraemia [None]
  - Dyspnoea exertional [None]
  - Malaise [None]
  - Fatigue [None]
  - SARS-CoV-2 test negative [None]
  - Tachycardia [None]
  - White blood cell count decreased [None]
  - Haemoglobin decreased [None]
  - Human rhinovirus test positive [None]
  - Enterovirus test positive [None]
  - Escherichia test positive [None]
  - Sepsis [None]

NARRATIVE: CASE EVENT DATE: 20240805
